FAERS Safety Report 4423916-9 (Version None)
Quarter: 2004Q3

REPORT INFORMATION
  Report Type: 
  Country: None (occurrence: None)
  Receive Date: 20040806
  Receipt Date: 20040727
  Transmission Date: 20050211
  Serious: Yes (Hospitalization)
  Sender: FDA-Public Use
  Company Number: K200401122

PATIENT
  Age: 60 Year
  Sex: Male

DRUGS (4)
  1. ALTACE [Suspect]
     Dosage: 10 MG, ORAL
     Route: 048
  2. ACTRAPID HUMAN (INSULIN HUMAN) 18IU [Suspect]
     Indication: DIABETES MELLITUS
     Dosage: 18 IU, SINGLE
     Dates: start: 20030923, end: 20030923
  3. GINGIUM (GINKGO BILOBA EXTRACT) TABLET [Concomitant]
  4. LIMPTAR (QUININE SULFATE) TABLET [Concomitant]

REACTIONS (6)
  - BLOOD GLUCOSE DECREASED [None]
  - BLOOD GLUCOSE INCREASED [None]
  - BLOOD PRESSURE SYSTOLIC INCREASED [None]
  - HYPOGLYCAEMIA [None]
  - METABOLIC DISORDER [None]
  - VOMITING [None]
